FAERS Safety Report 5848319-1 (Version None)
Quarter: 2008Q3

REPORT INFORMATION
  Report Type: 
  Country: None (occurrence: None)
  Receive Date: 20080818
  Receipt Date: 20080812
  Transmission Date: 20090109
  Serious: Yes (Life-Threatening, Hospitalization, Other)
  Sender: FDA-Public Use
  Company Number: JP-MERCK-0807USA01024

PATIENT
  Age: 54 Year
  Sex: Male

DRUGS (8)
  1. PRIMAXIN [Suspect]
     Indication: LIVER ABSCESS
     Route: 042
     Dates: start: 20060606, end: 20060617
  2. BIAPENEM [Suspect]
     Route: 065
     Dates: start: 20060601, end: 20060601
  3. BIAPENEM [Suspect]
     Route: 065
     Dates: start: 20060601, end: 20060701
  4. POLYMYXIN B SULFATE [Suspect]
     Route: 065
     Dates: start: 20060601, end: 20060701
  5. FLUCONAZOLE [Concomitant]
     Indication: EYE INFECTION FUNGAL
     Route: 042
     Dates: start: 20060701, end: 20060807
  6. FUNGUARD [Concomitant]
     Indication: EYE INFECTION FUNGAL
     Route: 042
     Dates: start: 20060808
  7. CLINDAMYCIN PHOSPHATE [Suspect]
     Indication: LIVER ABSCESS
     Route: 042
     Dates: start: 20060608, end: 20060612
  8. CIPROFLOXACIN HCL [Suspect]
     Indication: LIVER ABSCESS
     Route: 042
     Dates: start: 20060618, end: 20060622

REACTIONS (5)
  - EYE INFECTION FUNGAL [None]
  - GLAUCOMA [None]
  - OSTEOMYELITIS [None]
  - PERITONITIS [None]
  - SYSTEMIC CANDIDA [None]
